FAERS Safety Report 23771818 (Version 2)
Quarter: 2024Q2

REPORT INFORMATION
  Report Type: Spontaneous
  Country: US (occurrence: US)
  Receive Date: 20240423
  Receipt Date: 20240514
  Transmission Date: 20240716
  Serious: Yes (Hospitalization, Other)
  Sender: FDA-Public Use
  Company Number: US-BIOGEN-2023BI01196794

PATIENT
  Sex: Female

DRUGS (3)
  1. TYSABRI [Suspect]
     Active Substance: NATALIZUMAB
     Indication: Multiple sclerosis
     Route: 050
     Dates: start: 20210927, end: 20230222
  2. TYSABRI [Suspect]
     Active Substance: NATALIZUMAB
     Route: 050
     Dates: start: 20240506
  3. TYSABRI [Suspect]
     Active Substance: NATALIZUMAB
     Route: 050
     Dates: start: 20210927, end: 20230202

REACTIONS (5)
  - Blood electrolytes decreased [Unknown]
  - Hyperemesis gravidarum [Unknown]
  - Prolonged labour [Unknown]
  - Maternal exposure during pregnancy [Recovered/Resolved]
  - Anaesthetic complication [Not Recovered/Not Resolved]
